FAERS Safety Report 7277933-4 (Version None)
Quarter: 2011Q1

REPORT INFORMATION
  Report Type: 
  Country: None (occurrence: None)
  Receive Date: 20110207
  Receipt Date: 20110127
  Transmission Date: 20110831
  Serious: Yes (Death)
  Sender: FDA-Public Use
  Company Number: JP-ROCHE-752744

PATIENT
  Age: 65 Year
  Sex: Male

DRUGS (13)
  1. NORVASC [Concomitant]
     Route: 048
  2. WARFARIN [Concomitant]
     Route: 048
  3. DIGOXIN [Concomitant]
  4. NITROGLYCERIN [Concomitant]
     Dosage: DRUG NAME: MILLIS; FORM: TAPE.
     Route: 062
  5. ASPIRIN [Concomitant]
     Route: 048
  6. LENDORMIN [Concomitant]
     Route: 048
  7. MEVALOTIN [Concomitant]
     Route: 048
  8. DEPAS [Concomitant]
     Route: 048
  9. CALONAL [Concomitant]
     Route: 048
     Dates: start: 20110107
  10. GASTER [Concomitant]
  11. ARTIST [Concomitant]
     Route: 048
  12. TAMIFLU [Suspect]
     Indication: INFLUENZA
     Route: 048
     Dates: start: 20110107, end: 20110107
  13. DIOVAN [Concomitant]
     Route: 048

REACTIONS (2)
  - CARDIAC FAILURE ACUTE [None]
  - RESPIRATORY FAILURE [None]
